FAERS Safety Report 16174546 (Version 2)
Quarter: 2019Q2

REPORT INFORMATION
  Report Type: Spontaneous
  Country: IT (occurrence: IT)
  Receive Date: 20190409
  Receipt Date: 20190416
  Transmission Date: 20190711
  Serious: Yes (Death)
  Sender: FDA-Public Use
  Company Number: IT-PFIZER INC-2019148371

PATIENT
  Age: 52 Year
  Sex: Male

DRUGS (2)
  1. VALIUM [Suspect]
     Active Substance: DIAZEPAM
  2. VIAGRA [Suspect]
     Active Substance: SILDENAFIL CITRATE

REACTIONS (4)
  - Drug abuse [Fatal]
  - Accidental death [Fatal]
  - Overdose [Fatal]
  - Intentional product misuse [Fatal]
